FAERS Safety Report 8507359-4 (Version None)
Quarter: 2012Q3

REPORT INFORMATION
  Report Type: 
  Country: None (occurrence: None)
  Receive Date: 20120712
  Receipt Date: 20120707
  Transmission Date: 20120928
  Serious: Yes (Hospitalization)
  Sender: FDA-Public Use
  Company Number: FR-ABBOTT-12P-056-0954842-00

PATIENT
  Age: 44 Year
  Sex: Female

DRUGS (2)
  1. ALIMTA [Concomitant]
     Indication: PRODUCT USED FOR UNKNOWN INDICATION
  2. DEPAKENE [Suspect]
     Indication: CONVULSION
     Route: 048

REACTIONS (1)
  - GENERALISED OEDEMA [None]
